FAERS Safety Report 4864210-1 (Version None)
Quarter: 2005Q4

REPORT INFORMATION
  Report Type: 
  Country: None (occurrence: None)
  Receive Date: 20051219
  Receipt Date: 20051201
  Transmission Date: 20060501
  Serious: Yes (Other)
  Sender: FDA-Public Use
  Company Number: 217445

PATIENT
  Age: 41 Year
  Sex: Male

DRUGS (4)
  1. AVASTIN [Suspect]
     Indication: COLORECTAL CANCER
     Dosage: 400 MG, QD, INTRAVENOUS
     Route: 042
     Dates: start: 20041215, end: 20050515
  2. OXALIPLATIN (OXALIPLATIN) [Concomitant]
  3. FOLIC ACID [Concomitant]
  4. FLUOROURACIL [Concomitant]

REACTIONS (3)
  - METASTASES TO LIVER [None]
  - METASTASES TO LYMPH NODES [None]
  - PANCREATITIS ACUTE [None]
